FAERS Safety Report 9718528 (Version 1)
Quarter: 2013Q4

REPORT INFORMATION
  Report Type: Not Available
  Country: US (occurrence: US)
  Receive Date: 20131125
  Receipt Date: 20131125
  Transmission Date: 20140711
  Serious: No
  Sender: FDA-Public Use
  Company Number: US-VIVUS-2013V1000731

PATIENT
  Age: 60 Year
  Sex: Female
  Weight: 81.72 kg

DRUGS (4)
  1. QSYMIA 7.5MG/46MG [Suspect]
     Indication: WEIGHT DECREASED
     Dosage: DAY 15 OF TAKING QSYMIA
     Route: 048
     Dates: start: 2013, end: 2013
  2. QSYMIA 3.75MG/23MG [Suspect]
     Indication: WEIGHT DECREASED
     Route: 048
     Dates: start: 201308, end: 2013
  3. QSYMIA 3.75MG/23MG [Suspect]
     Dosage: ONE DAY AFTER STOPPING THE 7.5MG/46MG
     Route: 048
     Dates: start: 2013
  4. LIPITOR [Concomitant]
     Indication: BLOOD CHOLESTEROL
     Dosage: STARTED AROUND 10 YEARS AGO
     Route: 048

REACTIONS (6)
  - Muscular weakness [Recovered/Resolved]
  - Mental impairment [Recovered/Resolved]
  - Dry mouth [Recovered/Resolved]
  - Constipation [Recovered/Resolved]
  - Feeling abnormal [Recovered/Resolved]
  - Drug dose omission [Recovered/Resolved]
